FAERS Safety Report 8962856 (Version 1)
Quarter: 2012Q4

REPORT INFORMATION
  Report Type: 
  Country: US (occurrence: US)
  Receive Date: 20121213
  Receipt Date: 20121213
  Transmission Date: 20130627
  Serious: No
  Sender: FDA-Public Use
  Company Number: US-009507513-1212USA002607

PATIENT
  Sex: Male

DRUGS (2)
  1. LOTRIMIN AF [Suspect]
     Indication: RASH
     Dosage: UNK
  2. LOTRIMIN AF [Suspect]
     Indication: MEDICAL OBSERVATION

REACTIONS (1)
  - Drug ineffective for unapproved indication [Unknown]
